FAERS Safety Report 24350503 (Version 1)
Quarter: 2024Q3

REPORT INFORMATION
  Report Type: Report from Study
  Country: CA (occurrence: CA)
  Receive Date: 20240923
  Receipt Date: 20240923
  Transmission Date: 20241016
  Serious: No
  Sender: ROCHE
  Company Number: CA-ROCHE-3518604

PATIENT
  Sex: Female

DRUGS (14)
  1. HERCEPTIN [Suspect]
     Active Substance: TRASTUZUMAB
     Indication: Breast cancer metastatic
     Route: 042
  2. HERCEPTIN [Suspect]
     Active Substance: TRASTUZUMAB
     Route: 042
     Dates: start: 20211021, end: 20211021
  3. HERCEPTIN [Suspect]
     Active Substance: TRASTUZUMAB
     Route: 042
     Dates: start: 20211111
  4. AMLODIPINE [Concomitant]
     Active Substance: AMLODIPINE BESYLATE
     Dosage: DISCONTINUATION REPORTED ON 28/FEB/2024. DISCONTINUATION DATE UNKNOWN
     Route: 048
  5. BETAHISTINE [Concomitant]
     Active Substance: BETAHISTINE
     Indication: Vertigo
  6. CALCIUM CARBONATE [Concomitant]
     Active Substance: CALCIUM CARBONATE
  7. CHONDROITIN;HYALURONIC ACID [Concomitant]
  8. COD LIVER OIL [Concomitant]
     Active Substance: COD LIVER OIL
  9. COLLAGEN [Concomitant]
     Active Substance: COLLAGEN
     Dosage: SUPPLEMENTS
  10. LETROZOLE [Concomitant]
     Active Substance: LETROZOLE
     Dates: start: 20221117
  11. METOPROLOL [Concomitant]
     Active Substance: METOPROLOL
     Route: 048
  12. TRAZODONE [Concomitant]
     Active Substance: TRAZODONE HYDROCHLORIDE
  13. VITAMIN B6 [Concomitant]
     Active Substance: PYRIDOXINE HYDROCHLORIDE
  14. VITAMIN D3 [Concomitant]
     Active Substance: CHOLECALCIFEROL

REACTIONS (2)
  - Illness [Unknown]
  - Sleep disorder [Unknown]
